FAERS Safety Report 11287136 (Version 2)
Quarter: 2015Q3

REPORT INFORMATION
  Report Type: Spontaneous
  Country: US (occurrence: US)
  Receive Date: 20150721
  Receipt Date: 20150727
  Transmission Date: 20151125
  Serious: No
  Sender: FDA-Public Use
  Company Number: US-LEO PHARMA-235527

PATIENT
  Age: 68 Year
  Sex: Male

DRUGS (1)
  1. PICATO [Suspect]
     Active Substance: INGENOL MEBUTATE
     Indication: ACTINIC KERATOSIS
     Dates: start: 20150630, end: 20150702

REACTIONS (7)
  - Lacrimation increased [Recovered/Resolved]
  - Drug administered at inappropriate site [Unknown]
  - Eye swelling [Recovered/Resolved]
  - Swelling [Recovered/Resolved]
  - Visual impairment [Recovered/Resolved]
  - Eye swelling [Recovered/Resolved]
  - Application site pain [Recovered/Resolved]

NARRATIVE: CASE EVENT DATE: 20150701
